FAERS Safety Report 4334745-9 (Version None)
Quarter: 2004Q2

REPORT INFORMATION
  Report Type: 
  Country: None (occurrence: None)
  Receive Date: 20040405
  Receipt Date: 20040329
  Transmission Date: 20050107
  Serious: Yes (Hospitalization, Other)
  Sender: FDA-Public Use
  Company Number: US-JNJFOC-20040306437

PATIENT
  Age: 7 Year
  Sex: Male

DRUGS (2)
  1. CONCERTA [Suspect]
     Indication: ADVERSE EVENT
     Dosage: 27 MG ORAL
     Route: 048
  2. RISPERDAL [Concomitant]

REACTIONS (2)
  - BLOOD PRESSURE INCREASED [None]
  - HEADACHE [None]
